FAERS Safety Report 15211919 (Version 1)
Quarter: 2018Q3

REPORT INFORMATION
  Report Type: Spontaneous
  Country: US (occurrence: US)
  Receive Date: 20180702
  Receipt Date: 20180702
  Transmission Date: 20181010
  Serious: No
  Sender: FDA-Public Use
  Company Number: None

PATIENT
  Age: 59 Year
  Sex: Female

DRUGS (1)
  1. GLATIRAMER PFS INJ (12/BOX) [Suspect]
     Active Substance: GLATIRAMER
     Dates: start: 20180430, end: 20180702

REACTIONS (2)
  - Feeling hot [None]
  - Gait disturbance [None]

NARRATIVE: CASE EVENT DATE: 20180507
